FAERS Safety Report 4421367-4 (Version None)
Quarter: 2004Q3

REPORT INFORMATION
  Report Type: 
  Country: None (occurrence: None)
  Receive Date: 20040804
  Receipt Date: 20040720
  Transmission Date: 20050211
  Serious: Yes (Hospitalization, Other)
  Sender: FDA-Public Use
  Company Number: 2004224950BR

PATIENT
  Sex: Female

DRUGS (1)
  1. BEXTRA [Suspect]
     Indication: STOMATITIS
     Dosage: 40 MG, QD, ORAL
     Route: 048
     Dates: start: 20040716, end: 20040718

REACTIONS (2)
  - ABDOMINAL PAIN [None]
  - ANGIOPATHY [None]
